FAERS Safety Report 5343271-X (Version None)
Quarter: 2007Q2

REPORT INFORMATION
  Report Type: 
  Country: None (occurrence: None)
  Receive Date: 20070502
  Receipt Date: 20070221
  Transmission Date: 20071010
  Serious: Yes (Other)
  Sender: FDA-Public Use
  Company Number: PHEH2007US02283

PATIENT
  Age: 58 Year
  Sex: Female

DRUGS (1)
  1. LOTREL [Suspect]

REACTIONS (1)
  - BLOOD CREATININE INCREASED [None]
